FAERS Safety Report 5825148-6 (Version None)
Quarter: 2008Q3

REPORT INFORMATION
  Report Type: 
  Country: None (occurrence: None)
  Receive Date: 20080729
  Receipt Date: 20080716
  Transmission Date: 20090109
  Serious: Yes (Other)
  Sender: FDA-Public Use
  Company Number: CA-BAYER-200821597NA

PATIENT
  Sex: Female

DRUGS (1)
  1. MIRENA [Suspect]
     Indication: DRUG USE FOR UNKNOWN INDICATION
     Route: 015
     Dates: start: 20040101, end: 20070201

REACTIONS (3)
  - AMENORRHOEA [None]
  - INFERTILITY FEMALE [None]
  - MENSTRUATION IRREGULAR [None]
